FAERS Safety Report 14688179 (Version 1)
Quarter: 2018Q1

REPORT INFORMATION
  Report Type: Report from Study
  Country: None (occurrence: RO)
  Receive Date: 20180328
  Receipt Date: 20180328
  Transmission Date: 20180509
  Serious: Yes (Hospitalization)
  Sender: FDA-Public Use
  Company Number: RO-ABBVIE-18S-135-2300008-00

PATIENT
  Age: 53 Year
  Sex: Male

DRUGS (10)
  1. VIEKIRAX [Suspect]
     Active Substance: OMBITASVIR\PARITAPREVIR\RITONAVIR
     Indication: HEPATIC CIRRHOSIS
  2. CARVEDILOL. [Concomitant]
     Active Substance: CARVEDILOL
     Indication: CARDIOVASCULAR DISORDER
     Route: 048
  3. VIEKIRAX [Suspect]
     Active Substance: OMBITASVIR\PARITAPREVIR\RITONAVIR
     Indication: HEPATITIS C
     Route: 048
     Dates: start: 20171221, end: 20180316
  4. VESSEL DUE [Concomitant]
     Indication: CARDIOVASCULAR DISORDER
     Route: 048
  5. NORVASC [Concomitant]
     Active Substance: AMLODIPINE BESYLATE
     Indication: CARDIOVASCULAR DISORDER
     Route: 048
  6. EXVIERA [Suspect]
     Active Substance: DASABUVIR
     Indication: HEPATIC CIRRHOSIS
  7. EXVIERA [Suspect]
     Active Substance: DASABUVIR
     Indication: HEPATITIS C
     Route: 048
     Dates: start: 20171221, end: 20180316
  8. GABAGAMMA [Concomitant]
     Active Substance: GABAPENTIN
     Indication: CARDIOVASCULAR DISORDER
     Route: 048
  9. PENTOXIRETARD [Concomitant]
     Indication: CARDIOVASCULAR DISORDER
     Route: 048
  10. ASPENTER [Concomitant]
     Active Substance: ASPIRIN
     Indication: CARDIOVASCULAR DISORDER
     Route: 048

REACTIONS (1)
  - Toe amputation [Recovered/Resolved]

NARRATIVE: CASE EVENT DATE: 20180315
